FAERS Safety Report 9629468 (Version 1)
Quarter: 2013Q4

REPORT INFORMATION
  Report Type: Report from Study
  Country: US (occurrence: US)
  Receive Date: 20131017
  Receipt Date: 20131017
  Transmission Date: 20140711
  Serious: Yes (Hospitalization)
  Sender: FDA-Public Use
  Company Number: US-NOVOPROD-389752

PATIENT
  Age: 58 Year
  Sex: Male

DRUGS (1)
  1. NORDITROPIN FLEXPRO [Suspect]
     Indication: HYPOPITUITARISM
     Dosage: UNKNOWN
     Dates: start: 20010701, end: 201305

REACTIONS (3)
  - Pituitary tumour recurrent [Recovered/Resolved with Sequelae]
  - Brain neoplasm [Unknown]
  - Brain neoplasm [Unknown]
